FAERS Safety Report 22533990 (Version 3)
Quarter: 2024Q2

REPORT INFORMATION
  Report Type: Spontaneous
  Country: NL (occurrence: NL)
  Receive Date: 20230608
  Receipt Date: 20240522
  Transmission Date: 20240715
  Serious: Yes (Other)
  Sender: FDA-Public Use
  Company Number: NL-TAKEDA-2023TUS041395

PATIENT
  Sex: Male

DRUGS (8)
  1. LISDEXAMFETAMINE DIMESYLATE [Suspect]
     Active Substance: LISDEXAMFETAMINE DIMESYLATE
     Indication: Attention deficit hyperactivity disorder
     Dosage: 70 MILLIGRAM
     Route: 065
  2. LISDEXAMFETAMINE DIMESYLATE [Suspect]
     Active Substance: LISDEXAMFETAMINE DIMESYLATE
     Dosage: 40 MILLIGRAM
     Route: 065
  3. LISDEXAMFETAMINE DIMESYLATE [Suspect]
     Active Substance: LISDEXAMFETAMINE DIMESYLATE
     Dosage: 20 MILLIGRAM
     Route: 065
  4. LISDEXAMFETAMINE DIMESYLATE [Suspect]
     Active Substance: LISDEXAMFETAMINE DIMESYLATE
     Dosage: 30 MILLIGRAM
     Route: 065
  5. LISDEXAMFETAMINE DIMESYLATE [Suspect]
     Active Substance: LISDEXAMFETAMINE DIMESYLATE
     Dosage: 50 MILLIGRAM
     Route: 065
  6. LISDEXAMFETAMINE DIMESYLATE [Suspect]
     Active Substance: LISDEXAMFETAMINE DIMESYLATE
     Dosage: 70 MILLIGRAM
     Route: 065
  7. LISDEXAMFETAMINE DIMESYLATE [Suspect]
     Active Substance: LISDEXAMFETAMINE DIMESYLATE
     Dosage: 70 MILLIGRAM
     Route: 065
  8. LISDEXAMFETAMINE DIMESYLATE [Suspect]
     Active Substance: LISDEXAMFETAMINE DIMESYLATE
     Dosage: 70 MILLIGRAM, QD
     Route: 065

REACTIONS (26)
  - Loss of consciousness [Unknown]
  - Dry eye [Unknown]
  - Peripheral coldness [Unknown]
  - Photophobia [Unknown]
  - Feeling abnormal [Unknown]
  - Erythema [Unknown]
  - Loss of personal independence in daily activities [Recovering/Resolving]
  - Daydreaming [Recovered/Resolved]
  - Negative thoughts [Unknown]
  - Therapeutic product effect variable [Unknown]
  - Heart rate irregular [Unknown]
  - Fatigue [Recovered/Resolved]
  - Heart rate increased [Unknown]
  - Depressed mood [Unknown]
  - Hyperhidrosis [Unknown]
  - Irritability [Unknown]
  - Anxiety [Unknown]
  - Affect lability [Unknown]
  - Insomnia [Unknown]
  - Dizziness [Unknown]
  - Blood pressure increased [Unknown]
  - Product label issue [Unknown]
  - Product distribution issue [Unknown]
  - Product physical issue [Unknown]
  - Product quality issue [Unknown]
  - Product use issue [Unknown]
